FAERS Safety Report 21791264 (Version 1)
Quarter: 2022Q4

REPORT INFORMATION
  Report Type: Spontaneous
  Country: US (occurrence: None)
  Receive Date: 20221227
  Receipt Date: 20221227
  Transmission Date: 20230113
  Serious: Yes (Death)
  Sender: FDA-Public Use
  Company Number: None

PATIENT
  Age: 49 Year
  Sex: Female

DRUGS (2)
  1. NUCALA [Suspect]
     Active Substance: MEPOLIZUMAB
     Indication: Asthma
     Dosage: 100 MG/ML SUBCUTANEOUS??INJECT 1 ML UNDER THE SKIN (SUBCUTANEOUS INJECTION)  EVERY FOUR WEEKS
     Dates: start: 20221108
  2. FASENRA [Concomitant]
     Active Substance: BENRALIZUMAB

REACTIONS (1)
  - Death [None]

NARRATIVE: CASE EVENT DATE: 20221222
